FAERS Safety Report 4421382-0 (Version None)
Quarter: 2004Q3

REPORT INFORMATION
  Report Type: 
  Country: None (occurrence: None)
  Receive Date: 20040804
  Receipt Date: 20040727
  Transmission Date: 20050211
  Serious: No
  Sender: FDA-Public Use
  Company Number: 2004CG01341

PATIENT
  Age: 78 Year
  Sex: Female
  Weight: 66 kg

DRUGS (11)
  1. ATACAND [Suspect]
     Indication: HYPERTENSION
     Dosage: 16 MG DAILY PO
     Route: 048
     Dates: start: 20040319, end: 20040402
  2. ATACAND [Suspect]
     Indication: HYPERTENSION
     Dosage: 8 MG DAILY PO
     Route: 048
     Dates: start: 20040402, end: 20040421
  3. PREVISCAN [Concomitant]
  4. CORDARONE [Concomitant]
  5. NIFEDIPINE [Concomitant]
  6. ADANCOR [Concomitant]
  7. LIPANTHYL ^FOURNIER^ [Concomitant]
  8. DAFLON [Concomitant]
  9. PIASCLEDINE [Concomitant]
  10. NAXY [Concomitant]
  11. PNEUMOREL [Concomitant]

REACTIONS (11)
  - ASTHENIA [None]
  - ENTEROCOCCAL INFECTION [None]
  - HAEMATURIA [None]
  - HEADACHE [None]
  - HYPOVOLAEMIA [None]
  - INSOMNIA [None]
  - LEUKOCYTURIA [None]
  - MALAISE [None]
  - RENAL FAILURE ACUTE [None]
  - RENAL FAILURE CHRONIC [None]
  - SOMNOLENCE [None]
